FAERS Safety Report 9375189 (Version 1)
Quarter: 2013Q2

REPORT INFORMATION
  Report Type: Spontaneous
  Country: CA (occurrence: CA)
  Receive Date: 20130628
  Receipt Date: 20130628
  Transmission Date: 20140414
  Serious: Yes (Other)
  Sender: FDA-Public Use
  Company Number: CA-JNJFOC-20130613053

PATIENT
  Age: 66 Year
  Sex: Male
  Weight: 136.08 kg

DRUGS (6)
  1. BENYLIN AIO COLD + FLU DAY LIQUID [Suspect]
     Indication: NASOPHARYNGITIS
     Dosage: 30ML EVERY 6 HOURS
     Route: 048
     Dates: start: 20130616, end: 20130618
  2. SHORT ACTING INSULIN [Suspect]
     Indication: DIABETES MELLITUS
     Dosage: 8-10 YEARS
     Route: 065
  3. LONG ACTING INSULIN [Suspect]
     Indication: DIABETES MELLITUS
     Dosage: 8-10 YEARS
     Route: 065
  4. METFORMIN [Suspect]
     Indication: DIABETES MELLITUS
     Dosage: 20 YEARS
     Route: 065
  5. LIPITOR [Concomitant]
     Indication: BLOOD CHOLESTEROL
     Dosage: 10 YEARS
     Route: 065
  6. WATER PILL NOS [Concomitant]
     Indication: BLOOD PRESSURE
     Route: 065

REACTIONS (2)
  - Blood glucose increased [Not Recovered/Not Resolved]
  - Off label use [Unknown]
